FAERS Safety Report 24070216 (Version 1)
Quarter: 2024Q3

REPORT INFORMATION
  Report Type: Report from Study
  Country: US (occurrence: US)
  Receive Date: 20240710
  Receipt Date: 20240710
  Transmission Date: 20241017
  Serious: No
  Sender: ROCHE
  Company Number: US-ROCHE-3182802

PATIENT
  Age: 61 Year
  Sex: Male

DRUGS (4)
  1. PHESGO [Suspect]
     Active Substance: HYALURONIDASE-ZZXF\PERTUZUMAB\TRASTUZUMAB
     Indication: Metastasis
     Dosage: DOT: 27/SEP/2022
     Route: 042
  2. PHESGO [Suspect]
     Active Substance: HYALURONIDASE-ZZXF\PERTUZUMAB\TRASTUZUMAB
     Indication: Gastric cancer
  3. PERTUZUMAB [Suspect]
     Active Substance: PERTUZUMAB
     Indication: Gastric cancer
     Route: 058
  4. PERTUZUMAB [Suspect]
     Active Substance: PERTUZUMAB
     Indication: Gastric cancer

REACTIONS (2)
  - Off label use [Unknown]
  - No adverse event [Unknown]
